FAERS Safety Report 7903966-8 (Version None)
Quarter: 2011Q4

REPORT INFORMATION
  Report Type: 
  Country: None (occurrence: None)
  Receive Date: 20111109
  Receipt Date: 20111103
  Transmission Date: 20120403
  Serious: No
  Sender: FDA-Public Use
  Company Number: US-BAYER-2011-108130

PATIENT
  Age: 29 Year
  Sex: Male
  Weight: 93 kg

DRUGS (1)
  1. ALEVE (CAPLET) [Suspect]
     Indication: TOOTHACHE
     Dosage: UNK
     Dates: start: 20011102

REACTIONS (1)
  - NO ADVERSE EVENT [None]
